FAERS Safety Report 23247475 (Version 2)
Quarter: 2023Q4

REPORT INFORMATION
  Report Type: Spontaneous
  Country: US (occurrence: US)
  Receive Date: 20231130
  Receipt Date: 20231207
  Transmission Date: 20240110
  Serious: Yes (Other)
  Sender: FDA-Public Use
  Company Number: US-APELLIS PHARMACEUTICALS-APL-2023-003194

PATIENT
  Age: 76 Year
  Sex: Male

DRUGS (7)
  1. SYFOVRE [Suspect]
     Active Substance: PEGCETACOPLAN
     Indication: Product used for unknown indication
     Dosage: UNK, OD
     Dates: start: 20230628
  2. SYFOVRE [Suspect]
     Active Substance: PEGCETACOPLAN
     Dosage: UNK, OD
     Dates: start: 20230905
  3. SYFOVRE [Suspect]
     Active Substance: PEGCETACOPLAN
     Dosage: UNK, OD
     Dates: start: 20231004
  4. ROSUVASTATIN [Concomitant]
     Active Substance: ROSUVASTATIN
     Indication: Product used for unknown indication
     Dosage: UNK
  5. AMLODIPINE [Concomitant]
     Active Substance: AMLODIPINE BESYLATE
     Indication: Product used for unknown indication
     Dosage: UNK
  6. DEXTRAN 70\HYPROMELLOSES [Concomitant]
     Active Substance: DEXTRAN 70\HYPROMELLOSES
     Indication: Product used for unknown indication
     Dosage: UNK, BID OU (OS)
     Route: 047
  7. DEXTRAN 70\HYPROMELLOSES [Concomitant]
     Active Substance: DEXTRAN 70\HYPROMELLOSES
     Dosage: UNK, BID OU (OD)
     Route: 047

REACTIONS (1)
  - Bacterial endophthalmitis [Recovered/Resolved]

NARRATIVE: CASE EVENT DATE: 20231014
